FAERS Safety Report 11468507 (Version 1)
Quarter: 2015Q3

REPORT INFORMATION
  Report Type: Spontaneous
  Country: US (occurrence: None)
  Receive Date: 20150904
  Receipt Date: 20150904
  Transmission Date: 20151125
  Serious: Yes (Hospitalization)
  Sender: FDA-Public Use
  Company Number: None

PATIENT
  Age: 4 Year
  Sex: Female
  Weight: 18.8 kg

DRUGS (4)
  1. ONCASPAR [Suspect]
     Active Substance: PEGASPARGASE
     Dates: end: 20150803
  2. VINCRISTINE SULFATE. [Suspect]
     Active Substance: VINCRISTINE SULFATE
     Dates: end: 20150803
  3. CYTARABINE. [Suspect]
     Active Substance: CYTARABINE
     Dates: end: 20150803
  4. DEXAMETHASONE. [Suspect]
     Active Substance: DEXAMETHASONE
     Dates: end: 20150809

REACTIONS (8)
  - Hypotension [None]
  - Irritability [None]
  - Vision blurred [None]
  - Agitation [None]
  - Vomiting [None]
  - Blindness transient [None]
  - Headache [None]
  - Reversible cerebral vasoconstriction syndrome [None]

NARRATIVE: CASE EVENT DATE: 20150809
